FAERS Safety Report 23692783 (Version 2)
Quarter: 2024Q2

REPORT INFORMATION
  Report Type: Spontaneous
  Country: HK (occurrence: HK)
  Receive Date: 20240401
  Receipt Date: 20240402
  Transmission Date: 20240716
  Serious: Yes (Life-Threatening, Hospitalization)
  Sender: FDA-Public Use
  Company Number: HK-BAYER-2024A046935

PATIENT
  Age: 6 Decade
  Sex: Male

DRUGS (1)
  1. ULTRAVIST [Suspect]
     Active Substance: IOPROMIDE
     Indication: Computerised tomogram
     Dosage: ONCE

REACTIONS (1)
  - Vital functions abnormal [Recovered/Resolved]

NARRATIVE: CASE EVENT DATE: 20240328
